FAERS Safety Report 7982284-6 (Version None)
Quarter: 2011Q4

REPORT INFORMATION
  Report Type: 
  Country: None (occurrence: None)
  Receive Date: 20111214
  Receipt Date: 20111214
  Transmission Date: 20120403
  Serious: Yes (Hospitalization)
  Sender: FDA-Public Use
  Company Number: None

PATIENT
  Sex: Male
  Weight: 123.4 kg

DRUGS (2)
  1. CARBOPLATIN [Suspect]
     Dosage: 1108 MG
     Dates: end: 20111207
  2. TAXOL [Suspect]
     Dosage: 436 MG
     Dates: end: 20111207

REACTIONS (3)
  - FATIGUE [None]
  - ANXIETY [None]
  - CHEST PAIN [None]
